FAERS Safety Report 7892231 (Version 5)
Quarter: 2012Q4

REPORT INFORMATION
  Report Type: 
  Country: US (occurrence: US)
  Receive Date: 20110408
  Receipt Date: 20120828
  Transmission Date: 20130627
  Serious: Yes (Disabling, Other)
  Sender: FDA-Public Use
  Company Number: US-009507513-1103USA03954

PATIENT

DRUGS (6)
  1. FOSAMAX [Suspect]
     Indication: OSTEOPOROSIS
     Dosage: 70 mg, QW
     Route: 048
     Dates: start: 200109, end: 20100901
  2. FOSAMAX PLUS D [Suspect]
     Indication: OSTEOPOROSIS
     Dosage: 70 mg, QW
     Route: 048
     Dates: start: 200109, end: 201009
  3. CALCIUM (UNSPECIFIED) [Concomitant]
     Indication: OSTEOPOROSIS
     Dosage: 600 mg, bid
  4. VITAMIN D (UNSPECIFIED) [Concomitant]
     Indication: OSTEOPOROSIS
     Dosage: 400 IU, qd
  5. BONIVA [Concomitant]
     Indication: OSTEOPOROSIS
     Dosage: 150 mg, QM
     Dates: start: 20080925
  6. FOSAMAX [Suspect]
     Indication: OSTEOPOROSIS
     Dosage: 70 mg, UNK
     Route: 048
     Dates: start: 20080721, end: 20100818

REACTIONS (41)
  - Femur fracture [Unknown]
  - Peroneal nerve palsy [Unknown]
  - Radius fracture [Unknown]
  - Musculoskeletal disorder [Unknown]
  - Tendon disorder [Unknown]
  - Neoplasm [Unknown]
  - Fall [Unknown]
  - Intervertebral disc degeneration [Unknown]
  - Visual impairment [Unknown]
  - Paraesthesia [Unknown]
  - Foot deformity [Unknown]
  - Bunion [Unknown]
  - Foot deformity [Unknown]
  - Hyperkeratosis [Unknown]
  - Foot deformity [Unknown]
  - Scar [Unknown]
  - Onychomycosis [Recovering/Resolving]
  - Muscular weakness [Unknown]
  - Adverse drug reaction [Unknown]
  - Scar [Unknown]
  - Intervertebral disc protrusion [Unknown]
  - Hypertrophy [Unknown]
  - Spinal compression fracture [Unknown]
  - Lumbar spinal stenosis [Unknown]
  - Urinary tract infection [Recovering/Resolving]
  - Cystitis [Unknown]
  - Essential hypertension [Unknown]
  - Nephrolithiasis [Unknown]
  - Intervertebral disc space narrowing [Unknown]
  - Arthropathy [Unknown]
  - Lumbar radiculopathy [Unknown]
  - Spinal osteoarthritis [Unknown]
  - Dysaesthesia [Unknown]
  - Haematuria [Unknown]
  - Paraesthesia [Unknown]
  - Pain in extremity [Unknown]
  - Drug hypersensitivity [Unknown]
  - Arthralgia [Recovered/Resolved]
  - Back pain [Unknown]
  - Oedema peripheral [Unknown]
  - Nausea [Unknown]
